FAERS Safety Report 9494622 (Version 2)
Quarter: 2013Q3

REPORT INFORMATION
  Report Type: Spontaneous
  Country: US (occurrence: US)
  Receive Date: 20130903
  Receipt Date: 20130926
  Transmission Date: 20140515
  Serious: Yes (Other)
  Sender: FDA-Public Use
  Company Number: US-JNJFOC-20130811498

PATIENT
  Age: 49 Year
  Sex: Female
  Weight: 86.18 kg

DRUGS (5)
  1. TYLENOL WARMING COUGH AND SEVERE CONGESTION DAYTIME HONEY LEMON [Suspect]
     Indication: NASOPHARYNGITIS
     Dosage: EVERY 4-6 HOURS
     Dates: start: 20130815, end: 20130816
  2. LYRICA [Concomitant]
     Indication: FIBROMYALGIA
     Route: 065
  3. SYNTHROID [Concomitant]
     Indication: THYROID DISORDER
     Route: 065
  4. CYMBALTA [Concomitant]
     Indication: ANTIDEPRESSANT THERAPY
     Route: 065
  5. TRIBENZOR [Concomitant]
     Indication: HYPERTENSION
     Dosage: 40.5-12.5
     Route: 065

REACTIONS (1)
  - Hallucination [Not Recovered/Not Resolved]
